FAERS Safety Report 8431727-2 (Version None)
Quarter: 2012Q2

REPORT INFORMATION
  Report Type: 
  Country: None (occurrence: None)
  Receive Date: 20120323
  Receipt Date: 20111003
  Transmission Date: 20120825
  Serious: Yes (Other)
  Sender: FDA-Public Use
  Company Number: 163-21880-11063626

PATIENT
  Age: 77 Year
  Sex: Male

DRUGS (2)
  1. REVLIMID [Suspect]
     Indication: MULTIPLE MYELOMA
     Dosage: 25 MG, 1 IN 1 D, PO, 7.5 MG, 1 IN 2 D, PO
     Route: 048
     Dates: start: 20110603, end: 20110613
  2. REVLIMID [Suspect]
     Indication: MULTIPLE MYELOMA
     Dosage: 25 MG, 1 IN 1 D, PO, 7.5 MG, 1 IN 2 D, PO
     Route: 048
     Dates: start: 20110427

REACTIONS (3)
  - CONSTIPATION [None]
  - CEREBROVASCULAR ACCIDENT [None]
  - FATIGUE [None]
